FAERS Safety Report 6910001-7 (Version None)
Quarter: 2010Q3

REPORT INFORMATION
  Report Type: 
  Country: None (occurrence: None)
  Receive Date: 20100806
  Receipt Date: 20100730
  Transmission Date: 20110219
  Serious: No
  Sender: FDA-Public Use
  Company Number: US-BIOGENIDEC-2010BI026013

PATIENT
  Age: 38 Year
  Sex: Male

DRUGS (1)
  1. AVONEX [Suspect]
     Indication: MULTIPLE SCLEROSIS
     Route: 030
     Dates: start: 19990101, end: 20100701

REACTIONS (4)
  - HEPATIC ENZYME INCREASED [None]
  - LOSS OF CONTROL OF LEGS [None]
  - MUSCULAR WEAKNESS [None]
  - PERONEAL NERVE PALSY [None]
